FAERS Safety Report 7116757-5 (Version None)
Quarter: 2010Q4

REPORT INFORMATION
  Report Type: 
  Country: None (occurrence: None)
  Receive Date: 20101122
  Receipt Date: 20101109
  Transmission Date: 20110411
  Serious: Yes (Death, Life-Threatening)
  Sender: FDA-Public Use
  Company Number: GXKR2010US12650

PATIENT
  Age: 60 Year
  Sex: Female

DRUGS (3)
  1. NAPROXEN [Suspect]
     Dosage: 40 DF
     Route: 048
  2. AMLODIPINE [Suspect]
     Route: 065
  3. METOPROLOL TARTRATE [Suspect]
     Route: 065

REACTIONS (4)
  - ENDOTRACHEAL INTUBATION [None]
  - HAEMODIALYSIS [None]
  - HYPOTENSION [None]
  - OVERDOSE [None]
